FAERS Safety Report 4412490-9 (Version None)
Quarter: 2004Q2

REPORT INFORMATION
  Report Type: 
  Country: None (occurrence: None)
  Receive Date: 20040630
  Receipt Date: 20040421
  Transmission Date: 20050107
  Serious: No
  Sender: FDA-Public Use
  Company Number: 04P-163-0258245-00

PATIENT
  Age: 17 Year
  Sex: Female
  Weight: 68.0396 kg

DRUGS (9)
  1. HUMIRA [Suspect]
     Indication: SYSTEMIC LUPUS ERYTHEMATOSUS
     Dosage: 40 MG, 1 IN 10 D, SUBCUTANEOUS
     Route: 058
     Dates: start: 20040101
  2. PREDNISONE [Concomitant]
  3. HYDROXYCHLOROQUINE PHOSPHATE [Concomitant]
  4. DAPSONE [Concomitant]
  5. LOMOTIL [Concomitant]
  6. METOCLOPRAMIDE [Concomitant]
  7. LANSOPRAZOLE [Concomitant]
  8. TEMAZEPAM [Concomitant]
  9. METHADONE HCL [Concomitant]

REACTIONS (2)
  - BACK PAIN [None]
  - PYREXIA [None]
